FAERS Safety Report 13122453 (Version 1)
Quarter: 2017Q1

REPORT INFORMATION
  Report Type: Spontaneous
  Country: US (occurrence: US)
  Receive Date: 20170117
  Receipt Date: 20170117
  Transmission Date: 20170428
  Serious: Yes (Disabling)
  Sender: FDA-Public Use
  Company Number: US-SA-2017SA005905

PATIENT
  Age: 46 Year
  Sex: Female

DRUGS (1)
  1. LANTUS [Suspect]
     Active Substance: INSULIN GLARGINE
     Indication: DIABETES MELLITUS
     Dosage: 30UNITS EVERY MORNING AND 30 UNITS EVERY NIGHT DOSE:30 UNIT(S)
     Route: 065

REACTIONS (2)
  - Blindness [Unknown]
  - Product use issue [Unknown]

NARRATIVE: CASE EVENT DATE: 20140807
